FAERS Safety Report 9897884 (Version 2)
Quarter: 2014Q1

REPORT INFORMATION
  Report Type: Spontaneous
  Country: JP (occurrence: JP)
  Receive Date: 20140214
  Receipt Date: 20140305
  Transmission Date: 20141002
  Serious: Yes (Other)
  Sender: FDA-Public Use
  Company Number: JP-SA-2014SA015718

PATIENT
  Age: 72 Year
  Sex: Female

DRUGS (1)
  1. ONETAXOTERE [Suspect]
     Indication: BREAST CANCER
     Dosage: 60 MG/M2/DAY, EVERY 3 WEEKS
     Route: 042
     Dates: start: 201310, end: 20140129

REACTIONS (1)
  - Retinopathy [Not Recovered/Not Resolved]
